FAERS Safety Report 9200816 (Version 1)
Quarter: 2013Q2

REPORT INFORMATION
  Report Type: Spontaneous
  Country: US (occurrence: US)
  Receive Date: 20130401
  Receipt Date: 20130401
  Transmission Date: 20140414
  Serious: Yes (Hospitalization)
  Sender: FDA-Public Use
  Company Number: US-PAR PHARMACEUTICAL, INC-2013SCPR005843

PATIENT
  Sex: 0

DRUGS (4)
  1. BUPROPION HCL [Suspect]
     Indication: DEPRESSION
     Dosage: UNK, UNKNOWN
     Route: 065
  2. BUPROPION HCL [Suspect]
     Indication: MOOD ALTERED
  3. FLUOXETINE [Suspect]
     Indication: MAJOR DEPRESSION
     Dosage: 10 MG, OD
     Route: 065
  4. FLUOXETINE [Suspect]
     Dosage: 40 MG, OD
     Route: 065

REACTIONS (18)
  - Unresponsive to stimuli [Recovered/Resolved]
  - Acidosis hyperchloraemic [Recovered/Resolved]
  - Hypokalaemia [Recovered/Resolved]
  - Hypocalcaemia [Recovered/Resolved]
  - Suicide attempt [Unknown]
  - Overdose [Recovered/Resolved]
  - Convulsion [Recovered/Resolved]
  - Hypoglycaemia [Recovered/Resolved]
  - Vomiting [Unknown]
  - Imprisonment [None]
  - Theft [None]
  - Treatment noncompliance [None]
  - Major depression [None]
  - Intentional overdose [None]
  - Feeling abnormal [None]
  - Haemoglobin decreased [None]
  - Stress [None]
  - Memory impairment [None]
